FAERS Safety Report 20807112 (Version 13)
Quarter: 2023Q4

REPORT INFORMATION
  Report Type: Spontaneous
  Country: CA (occurrence: CA)
  Receive Date: 20220510
  Receipt Date: 20231006
  Transmission Date: 20240109
  Serious: Yes (Other)
  Sender: FDA-Public Use
  Company Number: CA-CELLTRION INC.-2021CA019210

PATIENT

DRUGS (15)
  1. INFLECTRA [Suspect]
     Active Substance: INFLIXIMAB-DYYB
     Indication: Crohn^s disease
     Dosage: 5 MG/KG, Q 0, 2, 6 THEN EVERY 8 WEEKS; DOSE - 427.5 MG OR 5 MG/KG
     Route: 042
     Dates: start: 20211025
  2. INFLECTRA [Suspect]
     Active Substance: INFLIXIMAB-DYYB
     Dosage: 5 MG/KG, 0, 2, 6 THEN EVERY 8 WEEKS; DOSE - 427.5 MG OR 5 MG/KG
     Route: 042
     Dates: start: 20211209
  3. INFLECTRA [Suspect]
     Active Substance: INFLIXIMAB-DYYB
     Dosage: 5 MG/KG, 0, 2, 6 THEN EVERY 8 WEEKS; DOSE - 427.5 MG OR 5 MG/KG
     Route: 042
     Dates: start: 20220202
  4. INFLECTRA [Suspect]
     Active Substance: INFLIXIMAB-DYYB
     Dosage: 5 MG/KG, 0, 2, 6 THEN EVERY 8 WEEKS; DOSE - 427.5 MG OR 5 MG/KG
     Route: 042
     Dates: start: 20220427
  5. INFLECTRA [Suspect]
     Active Substance: INFLIXIMAB-DYYB
     Dosage: 5 MG/KG, 0, 2, 6 THEN EVERY 8 WEEKS; DOSE - 427.5 MG OR 5 MG/KG
     Route: 042
     Dates: start: 20220817
  6. INFLECTRA [Suspect]
     Active Substance: INFLIXIMAB-DYYB
     Dosage: 5 MG/KG, 0, 2, 6 THEN EVERY 8 WEEKS; DOSE - 427.5 MG OR 5 MG/KG
     Route: 042
     Dates: start: 20221026
  7. INFLECTRA [Suspect]
     Active Substance: INFLIXIMAB-DYYB
     Dosage: 5 MG/KG, 0, 2, 6 THEN EVERY 8 WEEKS
     Route: 042
     Dates: start: 20221221
  8. INFLECTRA [Suspect]
     Active Substance: INFLIXIMAB-DYYB
     Dosage: 5 MG/KG, 0, 2, 6 THEN EVERY 8 WEEKS
     Route: 042
     Dates: start: 20230215
  9. INFLECTRA [Suspect]
     Active Substance: INFLIXIMAB-DYYB
     Dosage: 5 MG/KG, 0, 2, 6 THEN EVERY 8 WEEKS
     Route: 042
     Dates: start: 20230405
  10. INFLECTRA [Suspect]
     Active Substance: INFLIXIMAB-DYYB
     Dosage: 405 MG, EVERY 8 WEEKS
     Route: 042
     Dates: start: 20230607
  11. INFLECTRA [Suspect]
     Active Substance: INFLIXIMAB-DYYB
     Dosage: 420 MG (5MG/KG) EVERY 8 WEEKS
     Route: 042
     Dates: start: 20230802
  12. INFLECTRA [Suspect]
     Active Substance: INFLIXIMAB-DYYB
     Dosage: 5 MG/KG (430 MG), EVERY 8 WEEKS
     Route: 042
     Dates: start: 20230927
  13. AZATHIOPRINE [Concomitant]
     Active Substance: AZATHIOPRINE
     Dosage: UNK
  14. KETAMINE [Concomitant]
     Active Substance: KETAMINE
     Dosage: UNK, INFUSIONS
  15. WELLBUTRIN [Concomitant]
     Active Substance: BUPROPION HYDROCHLORIDE
     Dosage: UNK

REACTIONS (10)
  - Gastrointestinal disorder [Unknown]
  - Thyroidectomy [Recovering/Resolving]
  - Papillary thyroid cancer [Unknown]
  - Abscess [Unknown]
  - Infusion site pain [Unknown]
  - Fistula [Unknown]
  - Condition aggravated [Recovering/Resolving]
  - Proctalgia [Unknown]
  - Infection [Unknown]
  - Arthralgia [Recovered/Resolved]

NARRATIVE: CASE EVENT DATE: 20211209
